FAERS Safety Report 9027430 (Version 2)
Quarter: 2013Q2

REPORT INFORMATION
  Report Type: Spontaneous
  Country: US (occurrence: US)
  Receive Date: 20130124
  Receipt Date: 20130424
  Transmission Date: 20140414
  Serious: No
  Sender: FDA-Public Use
  Company Number: US-MERCK-1301USA005608

PATIENT
  Sex: Male

DRUGS (4)
  1. PEGINTRON [Suspect]
     Indication: HEPATITIS C
     Dosage: UNK, REDIPEN
     Dates: start: 20121019
  2. REBETOL [Suspect]
     Indication: HEPATITIS C
     Dosage: 800 MG, QD
     Dates: start: 20121019
  3. REBETOL [Suspect]
     Dosage: 1200MG, QD
  4. VICTRELIS [Suspect]
     Indication: HEPATITIS C
     Dosage: UNK
     Dates: start: 20121124

REACTIONS (11)
  - Inflammation [Unknown]
  - Injection site reaction [Unknown]
  - Influenza [Unknown]
  - Loss of consciousness [Unknown]
  - Somnolence [Unknown]
  - Nausea [Unknown]
  - Dry mouth [Unknown]
  - Rash [Unknown]
  - Pruritus [Unknown]
  - Drug ineffective [Unknown]
  - Therapeutic response decreased [Unknown]
